FAERS Safety Report 25144947 (Version 1)
Quarter: 2025Q2

REPORT INFORMATION
  Report Type: Spontaneous
  Country: US (occurrence: None)
  Receive Date: 20250331
  Receipt Date: 20250331
  Transmission Date: 20250716
  Serious: Yes (Hospitalization)
  Sender: FDA-CTU
  Company Number: None

PATIENT
  Sex: Female

DRUGS (10)
  1. DIMETHYL FUMARATE [Suspect]
     Active Substance: DIMETHYL FUMARATE
     Indication: Multiple sclerosis
     Route: 048
     Dates: start: 20201016
  2. VITAMINS [Concomitant]
     Active Substance: VITAMINS
  3. CLONAZEPAM [Concomitant]
     Active Substance: CLONAZEPAM
  4. ELIQUIS [Concomitant]
     Active Substance: APIXABAN
  5. DIETARY SUPPLEMENT [Concomitant]
     Active Substance: DIETARY SUPPLEMENT
  6. GABAPENTIN [Concomitant]
     Active Substance: GABAPENTIN
  7. LINZESS [Concomitant]
     Active Substance: LINACLOTIDE
  8. MEMANTINE [Concomitant]
     Active Substance: MEMANTINE
  9. MIRALAX [Concomitant]
     Active Substance: POLYETHYLENE GLYCOL 3350
  10. PANTOPRAZOLE [Concomitant]
     Active Substance: PANTOPRAZOLE

REACTIONS (3)
  - Urinary tract infection [None]
  - Peripheral swelling [None]
  - Therapy interrupted [None]
